FAERS Safety Report 5959238-4 (Version None)
Quarter: 2008Q4

REPORT INFORMATION
  Report Type: 
  Country: None (occurrence: None)
  Receive Date: 20081120
  Receipt Date: 20080925
  Transmission Date: 20090506
  Serious: No
  Sender: FDA-Public Use
  Company Number: A0749235A

PATIENT
  Age: 55 Year
  Sex: Female

DRUGS (7)
  1. WELLBUTRIN SR [Suspect]
     Dosage: 150MG TWICE PER DAY
     Route: 048
     Dates: start: 20080905, end: 20080919
  2. MICARDIS [Concomitant]
  3. METOPROLOL TARTRATE [Concomitant]
  4. HYDROCHLOROTHIAZIDE [Concomitant]
  5. XANAX [Concomitant]
  6. LOVASTATIN [Concomitant]
  7. HYDROCODONE BITARTRATE [Concomitant]

REACTIONS (2)
  - DRUG INEFFECTIVE [None]
  - RESTLESSNESS [None]
